FAERS Safety Report 9375187 (Version 1)
Quarter: 2013Q2

REPORT INFORMATION
  Report Type: Spontaneous
  Country: US (occurrence: US)
  Receive Date: 20130628
  Receipt Date: 20130628
  Transmission Date: 20140414
  Serious: Yes (Life-Threatening, Hospitalization, Other)
  Sender: FDA-Public Use
  Company Number: US-JNJFOC-20130618704

PATIENT
  Sex: 0

DRUGS (1)
  1. NICOTROL INHALER [Suspect]
     Indication: SMOKING CESSATION THERAPY
     Route: 065

REACTIONS (7)
  - Myocardial infarction [Unknown]
  - Cardiac disorder [Unknown]
  - Expired drug administered [Unknown]
  - Thrombosis [Unknown]
  - Stress [Unknown]
  - Loss of consciousness [Unknown]
  - Electrocardiogram abnormal [Unknown]
